FAERS Safety Report 11687305 (Version 2)
Quarter: 2016Q1

REPORT INFORMATION
  Report Type: Spontaneous
  Country: US (occurrence: US)
  Receive Date: 20151030
  Receipt Date: 20160115
  Transmission Date: 20160525
  Serious: Yes (Other)
  Sender: FDA-Public Use
  Company Number: US-BAUSCH-BL-2015-025373

PATIENT
  Age: 4 Decade
  Sex: Female

DRUGS (1)
  1. LOTEMAX [Suspect]
     Active Substance: LOTEPREDNOL ETABONATE
     Indication: GIANT PAPILLARY CONJUNCTIVITIS
     Route: 061

REACTIONS (5)
  - Corneal disorder [Unknown]
  - Eye pain [Unknown]
  - Toxicity to various agents [Unknown]
  - Eye infection fungal [Unknown]
  - Pseudomonas infection [Unknown]

NARRATIVE: CASE EVENT DATE: 20151017
